FAERS Safety Report 7398745-7 (Version None)
Quarter: 2011Q2

REPORT INFORMATION
  Report Type: 
  Country: None (occurrence: None)
  Receive Date: 20110401
  Receipt Date: 20110401
  Transmission Date: 20111010
  Serious: Yes (Other)
  Sender: FDA-Public Use
  Company Number: None

PATIENT
  Age: 64 Year
  Sex: Female
  Weight: 49.8957 kg

DRUGS (2)
  1. AZITHROMYCIN [Suspect]
     Indication: BRONCHITIS
     Dosage: 2 DAY 1 PO; 1 DAY 2-5 PO
     Route: 048
     Dates: start: 20110326, end: 20110329
  2. AZITHROMYCIN [Suspect]
     Indication: BRONCHITIS
     Dosage: 2 DAY 1 PO; 1 DAY 2-5 PO
     Route: 048
     Dates: start: 20110325, end: 20110325

REACTIONS (14)
  - AGEUSIA [None]
  - BACK PAIN [None]
  - HEADACHE [None]
  - DIZZINESS [None]
  - DECREASED APPETITE [None]
  - FATIGUE [None]
  - ASTHENIA [None]
  - ANOSMIA [None]
  - EYELID OEDEMA [None]
  - PRODUCT SUBSTITUTION ISSUE [None]
  - FLANK PAIN [None]
  - OCULAR HYPERAEMIA [None]
  - SNEEZING [None]
  - EYE IRRITATION [None]
